FAERS Safety Report 21680397 (Version 2)
Quarter: 2023Q1

REPORT INFORMATION
  Report Type: Report from Study
  Country: US (occurrence: US)
  Receive Date: 20221205
  Receipt Date: 20230110
  Transmission Date: 20230417
  Serious: No
  Sender: FDA-Public Use
  Company Number: US-ABBVIE-4222054

PATIENT
  Sex: Female

DRUGS (2)
  1. IMBRUVICA [Suspect]
     Active Substance: IBRUTINIB
     Indication: Chronic lymphocytic leukaemia
     Dosage: LAST ADMIN DATE- 2022, MISSED DOSE
     Route: 048
     Dates: start: 20220419
  2. IMBRUVICA [Suspect]
     Active Substance: IBRUTINIB
     Indication: Chronic lymphocytic leukaemia
     Dosage: FIRST ADMIN DATE- 2022
     Route: 048

REACTIONS (4)
  - Rhinorrhoea [Unknown]
  - Oral herpes [Unknown]
  - White blood cell count decreased [Unknown]
  - Intentional dose omission [Unknown]
